FAERS Safety Report 7119742-2 (Version None)
Quarter: 2010Q4

REPORT INFORMATION
  Report Type: 
  Country: None (occurrence: None)
  Receive Date: 20101123
  Receipt Date: 20100804
  Transmission Date: 20110411
  Serious: No
  Sender: FDA-Public Use
  Company Number: US-BRISTOL-MYERS SQUIBB COMPANY-15219868

PATIENT
  Age: 68 Year
  Sex: Female

DRUGS (10)
  1. ONGLYZA [Suspect]
     Indication: DIABETES MELLITUS
     Dosage: 5MG OF ONGLYZA TABS TAKEN IN TO 2.5MG
     Dates: start: 20100725
  2. ASPIRIN [Concomitant]
  3. GEMFIBROZIL [Concomitant]
  4. LISINOPRIL [Concomitant]
  5. LIPITOR [Concomitant]
  6. FISH OIL [Concomitant]
  7. ALEVE (CAPLET) [Concomitant]
  8. DOCUSATE SODIUM [Concomitant]
  9. METOPROLOL [Concomitant]
  10. NITROGLYCERIN [Concomitant]

REACTIONS (1)
  - INSOMNIA [None]
